FAERS Safety Report 10163868 (Version 1)
Quarter: 2014Q2

REPORT INFORMATION
  Report Type: Report from Study
  Country: US (occurrence: US)
  Receive Date: 20140509
  Receipt Date: 20140509
  Transmission Date: 20141212
  Serious: Yes (Other)
  Sender: FDA-Public Use
  Company Number: US-ABBVIE-14P-163-1232691-00

PATIENT
  Age: 54 Year
  Sex: Male
  Weight: 144.37 kg

DRUGS (3)
  1. HUMIRA [Suspect]
     Indication: PSORIATIC ARTHROPATHY
     Dates: start: 2012, end: 201309
  2. SIMCOR [Concomitant]
     Indication: BLOOD CHOLESTEROL INCREASED
  3. OMEPRAZOLE [Concomitant]
     Indication: ANTACID THERAPY

REACTIONS (3)
  - Umbilical hernia [Recovered/Resolved]
  - Infected cyst [Recovered/Resolved]
  - Impaired healing [Recovered/Resolved]
